FAERS Safety Report 6933003-3 (Version None)
Quarter: 2010Q3

REPORT INFORMATION
  Report Type: 
  Country: None (occurrence: None)
  Receive Date: 20100818
  Receipt Date: 20100818
  Transmission Date: 20110219
  Serious: No
  Sender: FDA-Public Use
  Company Number: None

PATIENT
  Sex: Female

DRUGS (1)
  1. ANASTROZOLE [Suspect]
     Dosage: 1 MG QD PO
     Route: 048

REACTIONS (3)
  - BREAST PAIN [None]
  - HOT FLUSH [None]
  - PAIN [None]
